FAERS Safety Report 16965929 (Version 2)
Quarter: 2019Q4

REPORT INFORMATION
  Report Type: Spontaneous
  Country: US (occurrence: US)
  Receive Date: 20191028
  Receipt Date: 20191119
  Transmission Date: 20200122
  Serious: No
  Sender: FDA-Public Use
  Company Number: US-PFIZER INC-2019458559

PATIENT
  Age: 79 Year
  Sex: Female
  Weight: 122.4 kg

DRUGS (1)
  1. LATANOPROST. [Suspect]
     Active Substance: LATANOPROST
     Indication: EYE DISORDER
     Dosage: 2 GTT, 1X/DAY
     Route: 047
     Dates: start: 2018

REACTIONS (3)
  - Poor quality product administered [Not Recovered/Not Resolved]
  - Product quality issue [Not Recovered/Not Resolved]
  - Foreign body sensation in eyes [Not Recovered/Not Resolved]
